FAERS Safety Report 8075413-X (Version None)
Quarter: 2012Q1

REPORT INFORMATION
  Report Type: 
  Country: None (occurrence: None)
  Receive Date: 20120127
  Receipt Date: 20110708
  Transmission Date: 20120608
  Serious: No
  Sender: FDA-Public Use
  Company Number: KR-ELI_LILLY_AND_COMPANY-KR201106000915

PATIENT
  Age: 63 Year
  Sex: Female
  Weight: 88 kg

DRUGS (3)
  1. DRUG USED IN DIABETES [Concomitant]
     Indication: TYPE 2 DIABETES MELLITUS
  2. BYETTA [Suspect]
     Indication: TYPE 2 DIABETES MELLITUS
     Dosage: 5 UG, BID
     Route: 058
     Dates: start: 20110404
  3. ANTIHYPERTENSIVES [Concomitant]
     Indication: HYPERTENSION

REACTIONS (1)
  - NO ADVERSE EVENT [None]
